FAERS Safety Report 9659915 (Version 1)
Quarter: 2013Q4

REPORT INFORMATION
  Report Type: Report from Study
  Country: DE (occurrence: DE)
  Receive Date: 20131031
  Receipt Date: 20131031
  Transmission Date: 20140711
  Serious: Yes (Other)
  Sender: FDA-Public Use
  Company Number: DE-SA-2013SA108514

PATIENT
  Age: 74 Year
  Sex: Female
  Weight: 86 kg

DRUGS (5)
  1. MULTAQ [Suspect]
     Indication: ATRIAL FIBRILLATION
     Route: 048
     Dates: start: 20120713, end: 2013
  2. BETA BLOCKING AGENTS [Concomitant]
     Dates: start: 201102
  3. VIT K ANTAGONISTS [Concomitant]
     Dates: start: 20110201
  4. RAMIPRIL [Concomitant]
  5. TORASEMIDE [Concomitant]

REACTIONS (2)
  - Atrial fibrillation [Unknown]
  - Atrial fibrillation [Unknown]
